FAERS Safety Report 10971794 (Version 1)
Quarter: 2015Q1

REPORT INFORMATION
  Report Type: Spontaneous
  Country: US (occurrence: None)
  Receive Date: 20150330
  Receipt Date: 20150330
  Transmission Date: 20150721
  Serious: Yes (Disabling, Other)
  Sender: FDA-Public Use
  Company Number: None

PATIENT
  Sex: Female
  Weight: 51.71 kg

DRUGS (6)
  1. L-THYROXINE [Concomitant]
     Active Substance: LEVOTHYROXINE
  2. LEVETIRACETAM. [Suspect]
     Active Substance: LEVETIRACETAM
     Indication: INSOMNIA
     Dosage: 1000 MG 1/2 OF 1000  1 AND 1/2 PILLS 1/2 AT 8 AM 1 AT 8 PM BY MOUTH?
     Route: 048
     Dates: start: 20120918, end: 201503
  3. LEVETIRACETAM. [Suspect]
     Active Substance: LEVETIRACETAM
     Indication: UNEVALUABLE EVENT
     Dosage: 1000 MG 1/2 OF 1000  1 AND 1/2 PILLS 1/2 AT 8 AM 1 AT 8 PM BY MOUTH?
     Route: 048
     Dates: start: 20120918, end: 201503
  4. VITAMIN D3 [Concomitant]
     Active Substance: CHOLECALCIFEROL
  5. LEVETIRACETAM. [Suspect]
     Active Substance: LEVETIRACETAM
     Indication: SEIZURE
     Dosage: 1000 MG 1/2 OF 1000  1 AND 1/2 PILLS 1/2 AT 8 AM 1 AT 8 PM BY MOUTH?
     Route: 048
     Dates: start: 20120918, end: 201503
  6. LAMOTRIGINE. [Suspect]
     Active Substance: LAMOTRIGINE
     Dosage: 25 MG 5 PILLS 2 AT 8 AM 3 AT 8PM BY MOUTH
     Route: 048

REACTIONS (5)
  - Myalgia [None]
  - Contusion [None]
  - Musculoskeletal stiffness [None]
  - Seizure [None]
  - Pain in extremity [None]

NARRATIVE: CASE EVENT DATE: 201402
